FAERS Safety Report 5194752-3 (Version None)
Quarter: 2006Q4

REPORT INFORMATION
  Report Type: 
  Country: None (occurrence: None)
  Receive Date: 20061229
  Receipt Date: 20061219
  Transmission Date: 20070319
  Serious: Yes (Other)
  Sender: FDA-Public Use
  Company Number: 2006SE06842

PATIENT
  Age: 13127 Day
  Sex: Male
  Weight: 36.8 kg

DRUGS (1)
  1. SEROQUEL [Suspect]
     Dosage: 25 MG MORNING, 100 MG AT NIGHT
     Route: 048
     Dates: start: 20061205, end: 20061206

REACTIONS (6)
  - CONFUSIONAL STATE [None]
  - DELUSION [None]
  - DISORIENTATION [None]
  - HALLUCINATION, AUDITORY [None]
  - HALLUCINATION, VISUAL [None]
  - MENTAL STATUS CHANGES [None]
